FAERS Safety Report 19179666 (Version 3)
Quarter: 2021Q2

REPORT INFORMATION
  Report Type: Report from Study
  Country: GB (occurrence: GB)
  Receive Date: 20210426
  Receipt Date: 20210605
  Transmission Date: 20210717
  Serious: Yes (Other)
  Sender: FDA-Public Use
  Company Number: GB-TEVA-2021-GB-1903437

PATIENT
  Age: 58 Year
  Sex: Female

DRUGS (16)
  1. CAPECITABINE. [Suspect]
     Active Substance: CAPECITABINE
     Indication: HER2 POSITIVE BREAST CANCER
     Dosage: 5000 MILLIGRAM DAILY;
     Route: 048
     Dates: start: 20180405, end: 20180405
  2. DOCETAXEL. [Suspect]
     Active Substance: DOCETAXEL
     Dosage: 108 MG ONCE IN 3 WEEKS
     Route: 042
     Dates: start: 20161206, end: 20170126
  3. TRASTUZUMAB. [Suspect]
     Active Substance: TRASTUZUMAB
     Dosage: 714 MG ONCE IN 3 WEEKS LOADING DOSE, FIRST CYCLE
     Route: 042
     Dates: start: 20161115, end: 20161115
  4. PERTUZUMAB. [Suspect]
     Active Substance: PERTUZUMAB
     Dosage: 420 MG ONCE IN 3 WEEKS
     Route: 042
     Dates: start: 20161206, end: 20180208
  5. TRASTUZUMAB EMTANSINE [Suspect]
     Active Substance: ADO-TRASTUZUMAB EMTANSINE
     Indication: HER2 POSITIVE BREAST CANCER
     Dosage: 320 MG ONCE IN 3 WEEKS
     Route: 042
     Dates: start: 20200824
  6. DOCETAXEL. [Suspect]
     Active Substance: DOCETAXEL
     Dosage: 148 MG ONCE IN 3 WEEKS
     Route: 042
     Dates: start: 20161114, end: 20161114
  7. SARS?COV?2 VIRUS [Concomitant]
     Active Substance: SARS-COV-2
     Indication: COVID-19
     Route: 030
     Dates: start: 20210203, end: 20210203
  8. CAPECITABINE. [Suspect]
     Active Substance: CAPECITABINE
     Dosage: 3900 MILLIGRAM DAILY;
     Route: 048
     Dates: start: 20180426, end: 20190709
  9. DOCETAXEL. [Suspect]
     Active Substance: DOCETAXEL
     Indication: HER2 POSITIVE BREAST CANCER
     Dosage: 88 MG ONCE IN 3 WEEKS
     Route: 042
     Dates: start: 20170126, end: 20180216
  10. PERTUZUMAB. [Suspect]
     Active Substance: PERTUZUMAB
     Indication: HER2 POSITIVE BREAST CANCER
     Dosage: 840 MG ONCE IN 3 WEEKS LOADING DOSE FIRST CYCLE
     Route: 042
     Dates: start: 20161115, end: 20161115
  11. SARS?COV?2 VIRUS [Concomitant]
     Active Substance: SARS-COV-2
     Dosage: 0.3 ML
     Route: 030
     Dates: start: 20210415
  12. CAPECITABINE. [Suspect]
     Active Substance: CAPECITABINE
     Dosage: 3600 MILLIGRAM DAILY;
     Route: 048
     Dates: start: 20190730, end: 20200728
  13. TRASTUZUMAB. [Suspect]
     Active Substance: TRASTUZUMAB
     Dosage: 525 MG ONCE IN 3 WEEKS
     Route: 042
     Dates: start: 20161206, end: 20180208
  14. LISINOPRIL. [Concomitant]
     Active Substance: LISINOPRIL
     Indication: HYPERTENSION
     Dosage: 2.5 MILLIGRAM DAILY;
     Route: 048
     Dates: start: 20200928
  15. PACLITAXEL. [Suspect]
     Active Substance: PACLITAXEL
     Indication: HER2 POSITIVE BREAST CANCER
     Dosage: 162 MG
     Route: 042
     Dates: start: 20210326
  16. TRASTUZUMAB. [Suspect]
     Active Substance: TRASTUZUMAB
     Indication: HER2 POSITIVE BREAST CANCER
     Dosage: 600 MG ONCE IN 3 WEEKS
     Route: 058
     Dates: start: 20180405

REACTIONS (3)
  - Lower respiratory tract infection [Recovered/Resolved]
  - Urinary tract infection [Recovered/Resolved]
  - Vulvovaginal candidiasis [Recovered/Resolved]

NARRATIVE: CASE EVENT DATE: 20190416
